FAERS Safety Report 5957358-1 (Version None)
Quarter: 2008Q4

REPORT INFORMATION
  Report Type: 
  Country: None (occurrence: None)
  Receive Date: 20081114
  Receipt Date: 20081031
  Transmission Date: 20090506
  Serious: Yes (Other)
  Sender: FDA-Public Use
  Company Number: 2008SP020236

PATIENT
  Age: 28 Year

DRUGS (2)
  1. DESLORATADINE [Suspect]
     Indication: URTICARIA
     Dosage: 5 MG;QD;PO
     Route: 048
     Dates: start: 20080926, end: 20080927
  2. CETIRIZINA [Concomitant]

REACTIONS (4)
  - BRONCHOSPASM [None]
  - DRUG INEFFECTIVE [None]
  - PARADOXICAL DRUG REACTION [None]
  - PRURITUS [None]
